FAERS Safety Report 17089388 (Version 1)
Quarter: 2019Q4

REPORT INFORMATION
  Report Type: Spontaneous
  Country: FR (occurrence: FR)
  Receive Date: 20191128
  Receipt Date: 20191128
  Transmission Date: 20200122
  Serious: Yes (Death)
  Sender: FDA-Public Use
  Company Number: NVSC2019FR050743

PATIENT
  Age: 66 Year
  Sex: Male

DRUGS (24)
  1. PREDNISOLONE. [Suspect]
     Active Substance: PREDNISOLONE
     Indication: IMMUNE THROMBOCYTOPENIC PURPURA
     Dosage: UNK
     Route: 065
  2. ROMIPLOSTIM [Suspect]
     Active Substance: ROMIPLOSTIM
     Indication: IMMUNE THROMBOCYTOPENIC PURPURA
     Dosage: 0.01 MG/KG
     Route: 065
  3. DOXORUBICIN [Suspect]
     Active Substance: DOXORUBICIN
     Indication: HAEMORRHAGIC DISORDER
  4. ROMIPLOSTIM [Suspect]
     Active Substance: ROMIPLOSTIM
     Indication: GASTROINTESTINAL HAEMORRHAGE
  5. DOXORUBICIN [Suspect]
     Active Substance: DOXORUBICIN
     Indication: GASTROINTESTINAL HAEMORRHAGE
  6. DEXAMETHASONE. [Suspect]
     Active Substance: DEXAMETHASONE
     Indication: GASTROINTESTINAL HAEMORRHAGE
  7. GEMCITABINE. [Suspect]
     Active Substance: GEMCITABINE
     Indication: HAEMORRHAGIC DISORDER
  8. PREDNISOLONE. [Suspect]
     Active Substance: PREDNISOLONE
     Indication: GASTROINTESTINAL HAEMORRHAGE
  9. VINBLASTINE [Suspect]
     Active Substance: VINBLASTINE
     Indication: GASTROINTESTINAL HAEMORRHAGE
  10. DOXORUBICIN [Suspect]
     Active Substance: DOXORUBICIN
     Indication: IMMUNE THROMBOCYTOPENIC PURPURA
     Dosage: UNK
     Route: 065
  11. ROMIPLOSTIM [Suspect]
     Active Substance: ROMIPLOSTIM
     Indication: HAEMORRHAGIC DISORDER
  12. RITUXIMAB. [Suspect]
     Active Substance: RITUXIMAB
     Indication: IMMUNE THROMBOCYTOPENIC PURPURA
     Dosage: 375 MG/M2, QW, 4 INJECTIONS
     Route: 065
  13. GEMCITABINE. [Suspect]
     Active Substance: GEMCITABINE
     Indication: IMMUNE THROMBOCYTOPENIC PURPURA
     Dosage: UNK
     Route: 065
  14. PREDNISOLONE. [Suspect]
     Active Substance: PREDNISOLONE
     Indication: HAEMORRHAGIC DISORDER
  15. VINCRISTINE [Suspect]
     Active Substance: VINCRISTINE
     Indication: IMMUNE THROMBOCYTOPENIC PURPURA
     Dosage: 1 MG/M2, QW, 4 INJECTIONS
     Route: 065
  16. DEXAMETHASONE. [Suspect]
     Active Substance: DEXAMETHASONE
     Indication: HAEMORRHAGIC DISORDER
  17. RITUXIMAB. [Suspect]
     Active Substance: RITUXIMAB
     Indication: GASTROINTESTINAL HAEMORRHAGE
  18. DEXAMETHASONE. [Suspect]
     Active Substance: DEXAMETHASONE
     Indication: IMMUNE THROMBOCYTOPENIC PURPURA
     Dosage: 160 MG, 4 DAYS
     Route: 042
  19. RITUXIMAB. [Suspect]
     Active Substance: RITUXIMAB
     Indication: HAEMORRHAGIC DISORDER
  20. VINCRISTINE [Suspect]
     Active Substance: VINCRISTINE
     Indication: GASTROINTESTINAL HAEMORRHAGE
  21. VINBLASTINE [Suspect]
     Active Substance: VINBLASTINE
     Indication: IMMUNE THROMBOCYTOPENIC PURPURA
     Dosage: UNK
     Route: 065
  22. GEMCITABINE. [Suspect]
     Active Substance: GEMCITABINE
     Indication: GASTROINTESTINAL HAEMORRHAGE
  23. VINCRISTINE [Suspect]
     Active Substance: VINCRISTINE
     Indication: HAEMORRHAGIC DISORDER
  24. VINBLASTINE [Suspect]
     Active Substance: VINBLASTINE
     Indication: HAEMORRHAGIC DISORDER

REACTIONS (1)
  - Hodgkin^s disease [Fatal]
